FAERS Safety Report 6441064-3 (Version None)
Quarter: 2009Q4

REPORT INFORMATION
  Report Type: 
  Country: None (occurrence: None)
  Receive Date: 20091116
  Receipt Date: 20091030
  Transmission Date: 20100525
  Serious: No
  Sender: FDA-Public Use
  Company Number: US-BAYER-200710376BCC

PATIENT
  Sex: Female
  Weight: 52 kg

DRUGS (1)
  1. ALEVE-D SINUS + COLD [Suspect]
     Indication: SINUS DISORDER

REACTIONS (1)
  - SINUS DISORDER [None]
